FAERS Safety Report 11725848 (Version 4)
Quarter: 2015Q4

REPORT INFORMATION
  Report Type: Spontaneous
  Country: CA (occurrence: CA)
  Receive Date: 20151111
  Receipt Date: 20151228
  Transmission Date: 20160304
  Serious: Yes (Hospitalization, Other)
  Sender: FDA-Public Use
  Company Number: CA-ROCHE-1658435

PATIENT
  Age: 52 Year
  Sex: Female

DRUGS (2)
  1. XOLAIR [Suspect]
     Active Substance: OMALIZUMAB
     Route: 058
     Dates: start: 20150618
  2. XOLAIR [Suspect]
     Active Substance: OMALIZUMAB
     Indication: ASTHMA
     Route: 058
     Dates: start: 20150508

REACTIONS (7)
  - Middle insomnia [Unknown]
  - Insomnia [Unknown]
  - Vomiting [Unknown]
  - Rash pruritic [Unknown]
  - Obstructive airways disorder [Unknown]
  - Asthma [Unknown]
  - Forced expiratory volume decreased [Unknown]

NARRATIVE: CASE EVENT DATE: 20150508
